FAERS Safety Report 9306667 (Version 2)
Quarter: 2013Q2

REPORT INFORMATION
  Report Type: Report from Study
  Country: US (occurrence: US)
  Receive Date: 20130523
  Receipt Date: 20130607
  Transmission Date: 20140414
  Serious: Yes (Hospitalization)
  Sender: FDA-Public Use
  Company Number: US-ACTELION-A-US2013-79740

PATIENT
  Age: 42 Year
  Sex: Female

DRUGS (3)
  1. TRACLEER [Suspect]
     Indication: PULMONARY ARTERIAL HYPERTENSION
     Dosage: UNK
     Route: 048
  2. REMODULIN [Concomitant]
  3. SILDENAFIL [Concomitant]

REACTIONS (4)
  - Fluid retention [Unknown]
  - Device related infection [Recovered/Resolved]
  - Bacteraemia [Recovered/Resolved]
  - Syncope [Recovered/Resolved]
